FAERS Safety Report 23921694 (Version 1)
Quarter: 2024Q2

REPORT INFORMATION
  Report Type: Spontaneous
  Country: US (occurrence: US)
  Receive Date: 20240530
  Receipt Date: 20240530
  Transmission Date: 20240716
  Serious: No
  Sender: FDA-Public Use
  Company Number: US-BEH-2024172499

PATIENT
  Age: 73 Year
  Sex: Female

DRUGS (24)
  1. ZEMAIRA [Suspect]
     Active Substance: .ALPHA.1-PROTEINASE INHIBITOR HUMAN
     Indication: Asthma
     Dosage: 60 MG/KG, QW
     Route: 042
  2. GAMUNEX-C [Concomitant]
     Active Substance: HUMAN IMMUNOGLOBULIN G
     Dosage: UNK
     Dates: start: 20240507
  3. BREYNA [Concomitant]
     Active Substance: BUDESONIDE\FORMOTEROL FUMARATE
  4. GABAPENTIN [Concomitant]
     Active Substance: GABAPENTIN
  5. FOSFOMYCIN TROMETHAMINE [Concomitant]
     Active Substance: FOSFOMYCIN TROMETHAMINE
  6. LEVAQUIN [Concomitant]
     Active Substance: LEVOFLOXACIN
  7. DEXILANT [Concomitant]
     Active Substance: DEXLANSOPRAZOLE
  8. CHOLECALCIFEROL [Concomitant]
     Active Substance: CHOLECALCIFEROL
  9. FLUTICASONE [Concomitant]
     Active Substance: FLUTICASONE
  10. SALMETEROL [Concomitant]
     Active Substance: SALMETEROL
  11. SPIRIVA RESPIMAT [Concomitant]
     Active Substance: TIOTROPIUM BROMIDE
  12. PROPRANOLOL [Concomitant]
     Active Substance: PROPRANOLOL HYDROCHLORIDE
  13. MECLIZINE HYDROCHLORIDE [Concomitant]
     Active Substance: MECLIZINE HYDROCHLORIDE
  14. SINGULAIR [Concomitant]
     Active Substance: MONTELUKAST SODIUM
  15. AMLODIPINE BESYLATE [Concomitant]
     Active Substance: AMLODIPINE BESYLATE
  16. ATORVASTATIN [Concomitant]
     Active Substance: ATORVASTATIN
  17. CARVEDILOL [Concomitant]
     Active Substance: CARVEDILOL
  18. INTRAROSA [Concomitant]
     Active Substance: PRASTERONE
  19. LOSARTAN POT HCTZ [Concomitant]
  20. MAXALT [Concomitant]
     Active Substance: RIZATRIPTAN BENZOATE
  21. NASACORT ALLERGO [Concomitant]
  22. OLOPATADINE [Concomitant]
     Active Substance: OLOPATADINE
  23. VITAMIN D [Concomitant]
     Active Substance: VITAMIN D NOS
  24. BUDESONIDE [Concomitant]
     Active Substance: BUDESONIDE

REACTIONS (5)
  - Arthralgia [Recovered/Resolved]
  - Peripheral swelling [Recovered/Resolved]
  - Joint swelling [Recovered/Resolved]
  - Upper respiratory tract infection [Recovered/Resolved]
  - Off label use [Unknown]

NARRATIVE: CASE EVENT DATE: 20240507
